FAERS Safety Report 26208975 (Version 1)
Quarter: 2025Q4

REPORT INFORMATION
  Report Type: Spontaneous
  Country: US (occurrence: None)
  Receive Date: 20251226
  Receipt Date: 20251226
  Transmission Date: 20260117
  Serious: Yes (Other)
  Sender: FDA-CTU
  Company Number: None

PATIENT
  Age: 67 Year
  Sex: Female

DRUGS (1)
  1. COSENTYX [Suspect]
     Active Substance: SECUKINUMAB
     Indication: Hidradenitis
     Dosage: FREQUENCY : MONTHLY;

REACTIONS (12)
  - Condition aggravated [None]
  - Hidradenitis [None]
  - Dizziness [None]
  - Syncope [None]
  - Herpes simplex [None]
  - Hyperhidrosis [None]
  - Pyrexia [None]
  - Tremor [None]
  - Dysstasia [None]
  - Constipation [None]
  - Anaemia [None]
  - Drug ineffective [None]
